FAERS Safety Report 5811128-3 (Version None)
Quarter: 2008Q3

REPORT INFORMATION
  Report Type: 
  Country: None (occurrence: None)
  Receive Date: 20080716
  Receipt Date: 20080710
  Transmission Date: 20090109
  Serious: Yes (Other)
  Sender: FDA-Public Use
  Company Number: PHHY2008AR13729

PATIENT
  Sex: Female

DRUGS (3)
  1. CLOZAPINE [Suspect]
     Indication: SCHIZOPHRENIA
     Dosage: 200 MG/DAY
     Dates: start: 20080513
  2. CLOZAPINE [Suspect]
     Dosage: 100 MG/DAY
  3. LEVOTHYROXINE SODIUM [Concomitant]
     Indication: HYPOTHYROIDISM

REACTIONS (7)
  - DISUSE SYNDROME [None]
  - MYALGIA [None]
  - NEUTROPENIA [None]
  - NEUTROPHIL COUNT ABNORMAL [None]
  - ODYNOPHAGIA [None]
  - PHARYNGITIS [None]
  - WHITE BLOOD CELL DISORDER [None]
